FAERS Safety Report 23777488 (Version 1)
Quarter: 2024Q2

REPORT INFORMATION
  Report Type: Spontaneous
  Country: PL (occurrence: None)
  Receive Date: 20240424
  Receipt Date: 20240424
  Transmission Date: 20240716
  Serious: Yes (Other)
  Sender: FDA-Public Use
  Company Number: 2024A094664

PATIENT
  Age: 29220 Day
  Sex: Male

DRUGS (1)
  1. ACALABRUTINIB [Suspect]
     Active Substance: ACALABRUTINIB
     Route: 048
     Dates: start: 202309

REACTIONS (3)
  - Haemorrhage subcutaneous [Unknown]
  - Haematoma [Unknown]
  - Muscle strain [Unknown]

NARRATIVE: CASE EVENT DATE: 20231001
